FAERS Safety Report 11875953 (Version 3)
Quarter: 2016Q2

REPORT INFORMATION
  Report Type: Spontaneous
  Country: JP (occurrence: JP)
  Receive Date: 20151229
  Receipt Date: 20160525
  Transmission Date: 20160815
  Serious: Yes (Other)
  Sender: FDA-Public Use
  Company Number: JP-ACTELION-A-CH2015-128721

PATIENT
  Age: 8 Week
  Sex: Female

DRUGS (8)
  1. EPOPROSTENOL ACT [Suspect]
     Active Substance: EPOPROSTENOL
     Indication: PERSISTENT FOETAL CIRCULATION
     Dosage: UNK
     Route: 042
  2. TADALAFIL [Concomitant]
     Active Substance: TADALAFIL
  3. SILDENAFIL CITRATE. [Concomitant]
     Active Substance: SILDENAFIL CITRATE
  4. FUROSEMIDE. [Concomitant]
     Active Substance: FUROSEMIDE
  5. NITRIC OXIDE. [Concomitant]
     Active Substance: NITRIC OXIDE
  6. OPSUMIT [Suspect]
     Active Substance: MACITENTAN
     Indication: PERSISTENT FOETAL CIRCULATION
     Dosage: 0.12 MG/KG, QD
     Route: 048
     Dates: start: 20151116
  7. SPIRONOLACTONE. [Concomitant]
     Active Substance: SPIRONOLACTONE
  8. OPSUMIT [Suspect]
     Active Substance: MACITENTAN
     Dosage: 0.6 MG/KG, QD
     Route: 048

REACTIONS (3)
  - Haemoglobin decreased [Not Recovered/Not Resolved]
  - Transfusion [Unknown]
  - Aspartate aminotransferase increased [Recovering/Resolving]

NARRATIVE: CASE EVENT DATE: 201511
